FAERS Safety Report 12722504 (Version 1)
Quarter: 2016Q3

REPORT INFORMATION
  Report Type: Spontaneous
  Country: US (occurrence: US)
  Receive Date: 20160907
  Receipt Date: 20160907
  Transmission Date: 20161109
  Serious: No
  Sender: FDA-Public Use
  Company Number: US-GLAXOSMITHKLINE-US2016130122

PATIENT
  Age: 78 Year
  Sex: Male

DRUGS (16)
  1. COQ 10 [Concomitant]
     Active Substance: UBIDECARENONE
  2. VITAMIN E [Concomitant]
     Active Substance: .ALPHA.-TOCOPHEROL
  3. VENTOLIN [Suspect]
     Active Substance: ALBUTEROL SULFATE
     Indication: MULTIPLE ALLERGIES
  4. CINNAMON. [Concomitant]
     Active Substance: CINNAMON
  5. COUMADIN [Concomitant]
     Active Substance: WARFARIN SODIUM
  6. HUMALOG [Concomitant]
     Active Substance: INSULIN LISPRO
  7. BILBERRY [Concomitant]
     Active Substance: BILBERRY
  8. ALTACE [Concomitant]
     Active Substance: RAMIPRIL
  9. CRESTOR [Concomitant]
     Active Substance: ROSUVASTATIN CALCIUM
  10. VENTOLIN [Suspect]
     Active Substance: ALBUTEROL SULFATE
     Indication: ASTHMA
     Dosage: 2 PUFF(S), TID
     Route: 055
     Dates: start: 20160809
  11. APRISO [Concomitant]
     Active Substance: MESALAMINE
  12. ZETIA [Concomitant]
     Active Substance: EZETIMIBE
  13. LEVEMIR [Concomitant]
     Active Substance: INSULIN DETEMIR
  14. PROTONIX [Concomitant]
     Active Substance: PANTOPRAZOLE SODIUM
  15. TART CHERRY [Concomitant]
  16. VITAMIN C [Concomitant]
     Active Substance: ASCORBIC ACID

REACTIONS (6)
  - Gout [Not Recovered/Not Resolved]
  - Blood creatinine increased [Not Recovered/Not Resolved]
  - Blood uric acid increased [Not Recovered/Not Resolved]
  - Disease recurrence [Not Recovered/Not Resolved]
  - Pollakiuria [Not Recovered/Not Resolved]
  - Blood glucose increased [Not Recovered/Not Resolved]

NARRATIVE: CASE EVENT DATE: 20160820
